FAERS Safety Report 4614249-6 (Version None)
Quarter: 2005Q1

REPORT INFORMATION
  Report Type: 
  Country: None (occurrence: None)
  Receive Date: 20050321
  Receipt Date: 20050217
  Transmission Date: 20050727
  Serious: Yes (Hospitalization)
  Sender: FDA-Public Use
  Company Number: US-ABBOTT-05P-163-0291106-00

PATIENT
  Sex: Female
  Weight: 53.118 kg

DRUGS (6)
  1. HUMIRA [Suspect]
     Indication: RHEUMATOID ARTHRITIS
     Route: 058
     Dates: start: 20040101, end: 20050221
  2. METHOTREXATE SODIUM [Concomitant]
     Indication: RHEUMATOID ARTHRITIS
     Route: 058
  3. FOLIC ACID [Concomitant]
     Indication: RHEUMATOID ARTHRITIS
     Route: 048
  4. LEVOTHYROXINE [Concomitant]
     Indication: HYPOTHYROIDISM
     Route: 048
  5. RANITIDINE [Concomitant]
     Indication: GASTRIC DISORDER
     Route: 048
  6. NAPROXEN [Concomitant]
     Indication: PAIN
     Route: 048

REACTIONS (5)
  - BLOOD POTASSIUM DECREASED [None]
  - INJECTION SITE PAIN [None]
  - LOSS OF CONSCIOUSNESS [None]
  - MONONUCLEOSIS SYNDROME [None]
  - PRODUCTIVE COUGH [None]
